FAERS Safety Report 6770556-2 (Version None)
Quarter: 2010Q2

REPORT INFORMATION
  Report Type: 
  Country: None (occurrence: None)
  Receive Date: 20100615
  Receipt Date: 20100603
  Transmission Date: 20101027
  Serious: Yes (Other)
  Sender: FDA-Public Use
  Company Number: PHHY2010US36539

PATIENT
  Sex: Female
  Weight: 93.991 kg

DRUGS (9)
  1. RECLAST [Suspect]
     Indication: OSTEOPOROSIS
     Dosage: UNK
     Route: 042
     Dates: start: 20100528
  2. FIORICET [Concomitant]
  3. COUMADIN [Concomitant]
  4. WELLBUTRIN [Concomitant]
  5. ZOLOFT [Concomitant]
  6. TOPAMAX [Concomitant]
  7. TRAZODONE HYDROCHLORIDE [Concomitant]
  8. DESERIL [Concomitant]
  9. PEPCID [Concomitant]

REACTIONS (14)
  - ARTHRALGIA [None]
  - ASTHENIA [None]
  - CHILLS [None]
  - CONVULSION [None]
  - DECREASED APPETITE [None]
  - DISORIENTATION [None]
  - ENURESIS [None]
  - FATIGUE [None]
  - FEELING COLD [None]
  - HEADACHE [None]
  - PAIN [None]
  - PERIPHERAL COLDNESS [None]
  - SOMNOLENCE [None]
  - TREMOR [None]
